FAERS Safety Report 25341951 (Version 1)
Quarter: 2025Q2

REPORT INFORMATION
  Report Type: Spontaneous
  Country: US (occurrence: None)
  Receive Date: 20250520
  Receipt Date: 20250520
  Transmission Date: 20250717
  Serious: No
  Sender: FDA-CTU
  Company Number: None

PATIENT

DRUGS (3)
  1. CICLOPIROX [Suspect]
     Active Substance: CICLOPIROX
  2. KETOCONAZOLE [Suspect]
     Active Substance: KETOCONAZOLE
  3. ECONAZOLE [Suspect]
     Active Substance: ECONAZOLE

REACTIONS (1)
  - Drug ineffective [None]
